FAERS Safety Report 6267956-6 (Version None)
Quarter: 2009Q3

REPORT INFORMATION
  Report Type: 
  Country: None (occurrence: None)
  Receive Date: 20090713
  Receipt Date: 20090630
  Transmission Date: 20100115
  Serious: Yes (Hospitalization)
  Sender: FDA-Public Use
  Company Number: FABR-1000601

PATIENT
  Age: 27 Year
  Sex: Male
  Weight: 67 kg

DRUGS (7)
  1. FABRAZYME [Suspect]
     Indication: FABRY'S DISEASE
     Dosage: 70 MG, Q2W, INTRAVENOUS
     Route: 042
     Dates: start: 20030708
  2. BENADRYL [Concomitant]
  3. PREDNISONE TAB [Concomitant]
  4. IBUPROFEN [Concomitant]
  5. ZOFRAN [Concomitant]
  6. PERCOCET [Concomitant]
  7. UNKNOWN MEDICATIONS [Concomitant]

REACTIONS (25)
  - ABDOMINAL DISCOMFORT [None]
  - ANXIETY [None]
  - BACK INJURY [None]
  - CHEST DISCOMFORT [None]
  - CHILLS [None]
  - CONDITION AGGRAVATED [None]
  - DIARRHOEA [None]
  - ERYTHEMA [None]
  - HYPERHIDROSIS [None]
  - INFUSION RELATED REACTION [None]
  - LOWER RESPIRATORY TRACT INFECTION [None]
  - NASAL CONGESTION [None]
  - NASOPHARYNGITIS [None]
  - NAUSEA [None]
  - OBSTRUCTIVE AIRWAYS DISORDER [None]
  - OEDEMA PERIPHERAL [None]
  - PAIN [None]
  - PARAESTHESIA [None]
  - PRESYNCOPE [None]
  - PRURITUS [None]
  - PYREXIA [None]
  - SEDATION [None]
  - SINUSITIS [None]
  - TOOTH DISORDER [None]
  - VOMITING [None]
